FAERS Safety Report 21664142 (Version 2)
Quarter: 2022Q4

REPORT INFORMATION
  Report Type: Report from Study
  Country: US (occurrence: US)
  Receive Date: 20221130
  Receipt Date: 20221210
  Transmission Date: 20230113
  Serious: No
  Sender: FDA-Public Use
  Company Number: US-ABBVIE-4218576

PATIENT
  Age: 78 Year
  Sex: Female

DRUGS (1)
  1. IMBRUVICA [Suspect]
     Active Substance: IBRUTINIB
     Indication: Chronic lymphocytic leukaemia
     Route: 048

REACTIONS (12)
  - Oral discomfort [Not Recovered/Not Resolved]
  - COVID-19 [Recovered/Resolved]
  - White blood cell count abnormal [Recovering/Resolving]
  - Mouth ulceration [Recovering/Resolving]
  - Muscle spasms [Recovering/Resolving]
  - Urinary tract infection [Recovering/Resolving]
  - Fatigue [Recovering/Resolving]
  - Blood cholesterol abnormal [Recovering/Resolving]
  - Salivary gland enlargement [Recovering/Resolving]
  - Weight decreased [Recovering/Resolving]
  - Therapeutic product effect incomplete [Unknown]
  - Blood immunoglobulin G abnormal [Unknown]

NARRATIVE: CASE EVENT DATE: 20221125
